FAERS Safety Report 9101511 (Version 1)
Quarter: 2013Q1

REPORT INFORMATION
  Report Type: Spontaneous
  Country: US (occurrence: US)
  Receive Date: 20130218
  Receipt Date: 20130218
  Transmission Date: 20140127
  Serious: No
  Sender: FDA-Public Use
  Company Number: US-ASTRAZENECA-2013SE08336

PATIENT
  Age: 63 Year
  Sex: Female

DRUGS (5)
  1. ARIMIDEX [Suspect]
     Indication: BREAST CANCER
     Route: 048
     Dates: start: 2009
  2. ARIMIDEX [Suspect]
     Indication: BREAST CANCER
     Dosage: 1 MILLIGRAM DAILY, GENERIC FORM.
     Route: 048
  3. ARIMIDEX [Suspect]
     Indication: BREAST CANCER
     Route: 048
  4. JANIVIA [Concomitant]
     Route: 065
  5. GLIMEPIRIDE [Concomitant]
     Route: 065

REACTIONS (15)
  - Tendon pain [Unknown]
  - Local swelling [Unknown]
  - Weight decreased [Recovered/Resolved]
  - Abdominal discomfort [Unknown]
  - Pain [Unknown]
  - Dysphagia [Unknown]
  - Hiatus hernia [Unknown]
  - Pain [Unknown]
  - Walking disability [Unknown]
  - Back pain [Unknown]
  - Blood cholesterol increased [Unknown]
  - Feeling abnormal [Unknown]
  - Headache [Unknown]
  - Crying [Unknown]
  - Arthralgia [Unknown]
